FAERS Safety Report 23153401 (Version 1)
Quarter: 2023Q4

REPORT INFORMATION
  Report Type: Report from Study
  Country: MX (occurrence: MX)
  Receive Date: 20231107
  Receipt Date: 20231107
  Transmission Date: 20240109
  Serious: Yes (Hospitalization, Other)
  Sender: FDA-Public Use
  Company Number: MX-002147023-NVSC2023MX231063

PATIENT
  Sex: Female
  Weight: 60 kg

DRUGS (3)
  1. GILENYA [Suspect]
     Active Substance: FINGOLIMOD HYDROCHLORIDE
     Indication: Multiple sclerosis
     Dosage: 1 DOSAGE FORM (0.5 MG), QD
     Route: 048
     Dates: start: 2018, end: 202304
  2. PREGABALIN [Concomitant]
     Active Substance: PREGABALIN
     Indication: Pain
     Dosage: 1 DOSAGE FORM (75 MG), BID (OCCASIONALLY/ IN THE MORNING AND AT NIGHT)
     Route: 048
     Dates: start: 2018
  3. CIRUELAX [Concomitant]
     Indication: Constipation
     Dosage: 3 DOSAGE FORM (25 MG), WHEN NEEDED
     Route: 048
     Dates: start: 2018

REACTIONS (5)
  - Ligament rupture [Recovered/Resolved]
  - Multiple sclerosis [Not Recovered/Not Resolved]
  - Multiple sclerosis relapse [Unknown]
  - Ophthalmoplegia [Recovered/Resolved]
  - Drug ineffective [Unknown]

NARRATIVE: CASE EVENT DATE: 20190101
